FAERS Safety Report 14962545 (Version 4)
Quarter: 2019Q1

REPORT INFORMATION
  Report Type: Spontaneous
  Country: US (occurrence: US)
  Receive Date: 20180601
  Receipt Date: 20190304
  Transmission Date: 20190417
  Serious: Yes (Hospitalization, Other)
  Sender: FDA-Public Use
  Company Number: US-PFIZER INC-2018220550

PATIENT
  Age: 49 Year
  Sex: Female
  Weight: 133.8 kg

DRUGS (11)
  1. ZIPRASIDONE HCL [Suspect]
     Active Substance: ZIPRASIDONE HYDROCHLORIDE
     Dosage: 20 MG, UNK
     Dates: start: 2018
  2. ZIPRASIDONE HCL [Suspect]
     Active Substance: ZIPRASIDONE HYDROCHLORIDE
     Dosage: 60 MG, 2X/DAY
     Dates: start: 201801
  3. ZIPRASIDONE HCL [Suspect]
     Active Substance: ZIPRASIDONE HYDROCHLORIDE
     Dosage: 40 MG, 2X/DAY
     Dates: start: 201809
  4. CYMBALTA [Concomitant]
     Active Substance: DULOXETINE HYDROCHLORIDE
     Indication: TOURETTE^S DISORDER
     Dosage: UNK
     Dates: start: 2010
  5. CYMBALTA [Concomitant]
     Active Substance: DULOXETINE HYDROCHLORIDE
     Dosage: 60 MG, 1X/DAY [ONCE IN THE MORNING]
     Dates: start: 2011
  6. ZIPRASIDONE HCL [Suspect]
     Active Substance: ZIPRASIDONE HYDROCHLORIDE
     Indication: TOURETTE^S DISORDER
     Dosage: 60 MG, UNK
     Dates: start: 201101
  7. ZIPRASIDONE HCL [Suspect]
     Active Substance: ZIPRASIDONE HYDROCHLORIDE
     Dosage: 60 MG, UNK
  8. ZIPRASIDONE HCL [Suspect]
     Active Substance: ZIPRASIDONE HYDROCHLORIDE
     Dosage: 40 MG, UNK
     Dates: start: 20180414, end: 2018
  9. NORCO [Concomitant]
     Active Substance: ACETAMINOPHEN\HYDROCODONE BITARTRATE
     Dosage: UNK (ONLY W/OUT TYLENOL)
  10. ZIPRASIDONE HCL [Suspect]
     Active Substance: ZIPRASIDONE HYDROCHLORIDE
     Dosage: 120 MG, UNK
  11. ZIPRASIDONE HCL [Suspect]
     Active Substance: ZIPRASIDONE HYDROCHLORIDE
     Dosage: 60 MG, UNK
     Dates: start: 201803, end: 201804

REACTIONS (13)
  - Suicide attempt [Recovered/Resolved]
  - Feeling abnormal [Recovered/Resolved]
  - Drug use disorder [Recovered/Resolved]
  - Mental impairment [Recovered/Resolved]
  - Hyperhidrosis [Recovered/Resolved]
  - Vision blurred [Unknown]
  - Dementia Alzheimer^s type [Recovered/Resolved]
  - Fungal infection [Recovered/Resolved]
  - Product use in unapproved indication [Not Recovered/Not Resolved]
  - Tinea infection [Recovered/Resolved]
  - Affect lability [Unknown]
  - Rash [Recovered/Resolved]
  - Depression [Not Recovered/Not Resolved]

NARRATIVE: CASE EVENT DATE: 201101
